FAERS Safety Report 5969194-0 (Version None)
Quarter: 2008Q4

REPORT INFORMATION
  Report Type: 
  Country: None (occurrence: None)
  Receive Date: 20081126
  Receipt Date: 20080821
  Transmission Date: 20090506
  Serious: No
  Sender: FDA-Public Use
  Company Number: US-ABBOTT-08P-163-0471876-00

PATIENT
  Sex: Male
  Weight: 71.732 kg

DRUGS (2)
  1. SIMCOR [Suspect]
     Indication: CAROTID ARTERY DISEASE
     Route: 048
     Dates: start: 20080812, end: 20080821
  2. FISH OIL [Concomitant]
     Indication: DRUG USE FOR UNKNOWN INDICATION
     Route: 048
     Dates: start: 20080801

REACTIONS (3)
  - OEDEMA PERIPHERAL [None]
  - PRURITUS [None]
  - RASH [None]
